FAERS Safety Report 7345205-5 (Version None)
Quarter: 2011Q1

REPORT INFORMATION
  Report Type: 
  Country: None (occurrence: None)
  Receive Date: 20110310
  Receipt Date: 20110303
  Transmission Date: 20110831
  Serious: Yes (Other)
  Sender: FDA-Public Use
  Company Number: US-US-EMD SERONO, INC.-7037071

PATIENT
  Sex: Female
  Weight: 100 kg

DRUGS (3)
  1. ALLEGRA [Concomitant]
     Indication: SEASONAL ALLERGY
  2. REBIF [Suspect]
     Indication: MULTIPLE SCLEROSIS
     Route: 058
     Dates: start: 20101207
  3. OVCON-35 [Concomitant]
     Indication: CONTRACEPTION

REACTIONS (9)
  - RETCHING [None]
  - INJECTION SITE PAIN [None]
  - INJECTION SITE ERYTHEMA [None]
  - OPTIC NEURITIS [None]
  - INFLUENZA LIKE ILLNESS [None]
  - MULTIPLE SCLEROSIS RELAPSE [None]
  - INJECTION SITE HAEMATOMA [None]
  - NAUSEA [None]
  - INJECTION SITE URTICARIA [None]
